FAERS Safety Report 23670017 (Version 1)
Quarter: 2024Q1

REPORT INFORMATION
  Report Type: Spontaneous
  Country: US (occurrence: US)
  Receive Date: 20240325
  Receipt Date: 20240325
  Transmission Date: 20240409
  Serious: Yes (Other)
  Sender: FDA-Public Use
  Company Number: US-AMERICAN REGENT INC-2024001035

PATIENT
  Age: 26 Year
  Sex: Male

DRUGS (6)
  1. VASOPRESSIN [Suspect]
     Active Substance: VASOPRESSIN
     Indication: Shock
     Dosage: 0.08 UNITS/MIN
     Route: 065
  2. VASOPRESSIN [Suspect]
     Active Substance: VASOPRESSIN
     Dosage: AFTER VA-ECMO CANNULATION, VASOPRESSOR REQUIREMENTS DRAMATICALLY IMPROVED
     Route: 065
  3. EPINEPHRINE [Suspect]
     Active Substance: EPINEPHRINE
     Indication: Shock
     Dosage: 0.75 MICROGRAM PER KILOGRAM PER MINUTE
     Route: 065
  4. EPINEPHRINE [Suspect]
     Active Substance: EPINEPHRINE
     Dosage: AFTER VA-ECMO CANNULATION, VASOPRESSOR REQUIREMENTS DRAMATICALLY IMPROVED
     Route: 065
  5. NOREPINEPHRINE [Suspect]
     Active Substance: NOREPINEPHRINE\NOREPINEPHRINE BITARTRATE
     Indication: Shock
     Dosage: 0.6 MICROGRAM PER KILOGRAM PER MINUTE
     Route: 065
  6. NOREPINEPHRINE [Suspect]
     Active Substance: NOREPINEPHRINE\NOREPINEPHRINE BITARTRATE
     Dosage: AFTER VA-ECMO CANNULATION, VASOPRESSOR REQUIREMENTS DRAMATICALLY IMPROVED
     Route: 065

REACTIONS (4)
  - Shock [Recovered/Resolved]
  - Drug ineffective [Recovered/Resolved]
  - Drug ineffective for unapproved indication [Recovered/Resolved]
  - Product use in unapproved indication [Unknown]
